FAERS Safety Report 20992647 (Version 8)
Quarter: 2022Q3

REPORT INFORMATION
  Report Type: Spontaneous
  Country: CA (occurrence: CA)
  Receive Date: 20220622
  Receipt Date: 20220825
  Transmission Date: 20221027
  Serious: Yes (Hospitalization, Other)
  Sender: FDA-Public Use
  Company Number: CA-PFIZER INC-202200855977

PATIENT
  Age: 30 Year
  Sex: Male

DRUGS (2)
  1. XELJANZ [Suspect]
     Active Substance: TOFACITINIB CITRATE
     Indication: Colitis ulcerative
     Dosage: 10 MG, 2X/DAY
     Route: 048
     Dates: start: 20220606, end: 202206
  2. XELJANZ [Suspect]
     Active Substance: TOFACITINIB CITRATE
     Dosage: 10 MG, 3X/DAY IN HOSPITAL, DISCONTINUED
     Route: 048
     Dates: start: 202206

REACTIONS (7)
  - Colitis ulcerative [Not Recovered/Not Resolved]
  - Feeling cold [Not Recovered/Not Resolved]
  - Colectomy [Unknown]
  - Therapeutic product effect incomplete [Unknown]
  - Cytomegalovirus infection [Unknown]
  - Clostridium difficile colitis [Unknown]
  - Off label use [Unknown]

NARRATIVE: CASE EVENT DATE: 20220601
